FAERS Safety Report 9264306 (Version 2)
Quarter: 2013Q2

REPORT INFORMATION
  Report Type: Spontaneous
  Country: BR (occurrence: BR)
  Receive Date: 20130430
  Receipt Date: 20130510
  Transmission Date: 20140414
  Serious: Yes (Disabling, Other)
  Sender: FDA-Public Use
  Company Number: BR-ELI_LILLY_AND_COMPANY-BR201304007510

PATIENT
  Sex: Female

DRUGS (2)
  1. HUMALOG LISPRO [Suspect]
     Indication: DIABETES MELLITUS
     Dosage: 45 IU, EACH MORNING
     Route: 058
  2. HUMALOG LISPRO [Suspect]
     Dosage: 20 IU, EACH EVENING
     Route: 058

REACTIONS (3)
  - Cataract [Unknown]
  - Blindness [Not Recovered/Not Resolved]
  - Hypoglycaemia [Not Recovered/Not Resolved]
